FAERS Safety Report 13190775 (Version 1)
Quarter: 2017Q1

REPORT INFORMATION
  Report Type: Spontaneous
  Country: CA (occurrence: CA)
  Receive Date: 20170206
  Receipt Date: 20170206
  Transmission Date: 20170428
  Serious: Yes (Other)
  Sender: FDA-Public Use
  Company Number: CA-TEVA-736021ACC

PATIENT
  Age: 86 Year
  Sex: Male
  Weight: 63 kg

DRUGS (14)
  1. TYLENOL [Concomitant]
     Active Substance: ACETAMINOPHEN
  2. PILOCARPINE. [Concomitant]
     Active Substance: PILOCARPINE
  3. VENTOLIN [Concomitant]
     Active Substance: ALBUTEROL SULFATE
  4. AVODART [Concomitant]
     Active Substance: DUTASTERIDE
  5. VITAMIN B12 [Concomitant]
     Active Substance: CYANOCOBALAMIN
  6. XALATAN [Concomitant]
     Active Substance: LATANOPROST
  7. COUMADIN [Concomitant]
     Active Substance: WARFARIN SODIUM
  8. DIOVAN [Concomitant]
     Active Substance: VALSARTAN
  9. HCTZ [Concomitant]
     Active Substance: HYDROCHLOROTHIAZIDE
  10. IMODIUM [Concomitant]
     Active Substance: LOPERAMIDE HYDROCHLORIDE
  11. LIPITOR [Concomitant]
     Active Substance: ATORVASTATIN CALCIUM
  12. REMERON RD [Concomitant]
     Active Substance: MIRTAZAPINE
  13. LEVETIRACETAM. [Suspect]
     Active Substance: LEVETIRACETAM
     Dosage: 500 MILLIGRAM DAILY;
     Route: 048
  14. RAPAFLO [Concomitant]
     Active Substance: SILODOSIN

REACTIONS (2)
  - Rash erythematous [Recovered/Resolved]
  - Enanthema [Recovered/Resolved]
